FAERS Safety Report 5959098-1 (Version None)
Quarter: 2008Q4

REPORT INFORMATION
  Report Type: 
  Country: None (occurrence: None)
  Receive Date: 20081120
  Receipt Date: 20080509
  Transmission Date: 20090506
  Serious: Yes (Other)
  Sender: FDA-Public Use
  Company Number: A0695642A

PATIENT
  Age: 56 Year
  Sex: Female
  Weight: 107.3 kg

DRUGS (6)
  1. WELLBUTRIN SR [Suspect]
     Indication: DEPRESSION
     Dosage: 450MG TWICE PER DAY
     Route: 048
     Dates: start: 19890101, end: 20071004
  2. ZOLOFT [Concomitant]
     Indication: DEPRESSION
     Dosage: 100MG PER DAY
     Route: 048
     Dates: start: 19980101
  3. HYDROCHLOROTHIAZIDE [Concomitant]
     Indication: HYPERTENSION
     Dosage: 25MG PER DAY
     Route: 048
     Dates: start: 19880101
  4. SYNTHROID [Concomitant]
     Dosage: 300MCG PER DAY
     Route: 048
     Dates: start: 19860101
  5. NAPROXEN SODIUM [Concomitant]
     Indication: TENDON DISORDER
     Dosage: 550MG TWICE PER DAY
     Route: 048
     Dates: start: 19900101, end: 20071004
  6. BENICAR [Concomitant]
     Indication: HYPERTENSION
     Dosage: 20MG PER DAY
     Route: 048
     Dates: start: 20070316, end: 20070701

REACTIONS (1)
  - URTICARIA [None]
